FAERS Safety Report 24232933 (Version 3)
Quarter: 2024Q4

REPORT INFORMATION
  Report Type: Report from Study
  Country: KR (occurrence: KR)
  Receive Date: 20240821
  Receipt Date: 20241105
  Transmission Date: 20250114
  Serious: Yes (Hospitalization)
  Sender: SPECTRUM
  Company Number: KR-SPECTRUM PHARMACEUTICALS, INC.-KR-2024AST000280

PATIENT
  Age: 71 Year
  Sex: Male
  Weight: 54.4 kg

DRUGS (1)
  1. ROLVEDON [Suspect]
     Active Substance: EFLAPEGRASTIM-XNST
     Indication: Neutropenia
     Dosage: 1 DF
     Route: 058
     Dates: start: 20230829, end: 20230829

REACTIONS (1)
  - Febrile neutropenia [Recovered/Resolved]

NARRATIVE: CASE EVENT DATE: 20230903
